FAERS Safety Report 16193179 (Version 1)
Quarter: 2019Q2

REPORT INFORMATION
  Report Type: Spontaneous
  Country: BY (occurrence: BY)
  Receive Date: 20190413
  Receipt Date: 20190413
  Transmission Date: 20190711
  Serious: Yes (Life-Threatening, Hospitalization)
  Sender: FDA-Public Use
  Company Number: BY-B.I. PHARMACEUTICALS,INC./RIDGEFIELD-2019-BI-017175

PATIENT
  Age: 40 Year
  Sex: Female
  Weight: 82 kg

DRUGS (5)
  1. ARIFON [Concomitant]
     Indication: PRODUCT USED FOR UNKNOWN INDICATION
     Route: 065
  2. HEPTRAL [Concomitant]
     Active Substance: ADEMETIONINE
     Indication: PRODUCT USED FOR UNKNOWN INDICATION
     Route: 065
  3. CONCOR [Concomitant]
     Active Substance: BISOPROLOL FUMARATE
     Indication: PRODUCT USED FOR UNKNOWN INDICATION
     Route: 065
  4. JARDIANCE [Suspect]
     Active Substance: EMPAGLIFLOZIN
     Indication: TYPE 2 DIABETES MELLITUS
     Route: 048
     Dates: start: 20190301, end: 20190310
  5. MOXONIDINUM [Concomitant]
     Indication: PRODUCT USED FOR UNKNOWN INDICATION
     Dosage: 0.2 IN THE EVENING
     Route: 065

REACTIONS (8)
  - Nausea [Unknown]
  - Dyspnoea [Unknown]
  - Tachycardia [Unknown]
  - Metabolic acidosis [Unknown]
  - Vomiting [Unknown]
  - Abdominal pain [Unknown]
  - Dyspnoea [Unknown]
  - Dizziness [Unknown]

NARRATIVE: CASE EVENT DATE: 20190301
